FAERS Safety Report 4778528-4 (Version None)
Quarter: 2005Q3

REPORT INFORMATION
  Report Type: 
  Country: None (occurrence: None)
  Receive Date: 20050926
  Receipt Date: 20050701
  Transmission Date: 20060218
  Serious: No
  Sender: FDA-Public Use
  Company Number: US-BRISTOL-MYERS SQUIBB COMPANY-13025754

PATIENT
  Age: 11 Year
  Sex: Male

DRUGS (2)
  1. REYATAZ [Suspect]
  2. NORVIR [Suspect]

REACTIONS (1)
  - JAUNDICE [None]
